FAERS Safety Report 8882051 (Version 1)
Quarter: 2012Q4

REPORT INFORMATION
  Report Type: Spontaneous
  Country: US (occurrence: None)
  Receive Date: 20121105
  Receipt Date: 20121105
  Transmission Date: 20130627
  Serious: Yes (Other)
  Sender: FDA-Public Use
  Company Number: None

PATIENT
  Age: 52 Year
  Sex: Male

DRUGS (1)
  1. METHYLPREDNISOLONE [Suspect]
     Dates: start: 20110204, end: 20110204

REACTIONS (4)
  - Central nervous system infection [None]
  - Bacterial infection [None]
  - Fungal infection [None]
  - Neck pain [None]
